FAERS Safety Report 14898558 (Version 4)
Quarter: 2018Q3

REPORT INFORMATION
  Report Type: Spontaneous
  Country: US (occurrence: US)
  Receive Date: 20180515
  Receipt Date: 20180711
  Transmission Date: 20181010
  Serious: Yes (Hospitalization, Other)
  Sender: FDA-Public Use
  Company Number: US-GLAXOSMITHKLINE-US2018GSK086140

PATIENT
  Age: 36 Year
  Sex: Female

DRUGS (2)
  1. LAMICTAL XR [Suspect]
     Active Substance: LAMOTRIGINE
     Indication: EPILEPSY
     Dosage: UNK
     Dates: start: 20160622
  2. LAMICTAL XR [Suspect]
     Active Substance: LAMOTRIGINE
     Dosage: 200 MG

REACTIONS (2)
  - Dizziness [Unknown]
  - Brain operation [Unknown]

NARRATIVE: CASE EVENT DATE: 20180507
